FAERS Safety Report 4473287-7 (Version None)
Quarter: 2004Q4

REPORT INFORMATION
  Report Type: 
  Country: None (occurrence: None)
  Receive Date: 20041013
  Receipt Date: 20040929
  Transmission Date: 20050328
  Serious: Yes (Death, Hospitalization)
  Sender: FDA-Public Use
  Company Number: PHBS2004JP13016

PATIENT
  Age: 62 Year
  Sex: Male
  Weight: 61 kg

DRUGS (6)
  1. DIOVAN [Suspect]
     Dosage: 40 MG, QD
     Route: 048
     Dates: start: 20030702, end: 20040204
  2. AMLODIN [Suspect]
     Dosage: 2.5 MG/DAY
     Route: 048
     Dates: end: 20040204
  3. ALLOPURINOL TAB [Suspect]
     Dosage: 100 MG/DAY
     Route: 048
     Dates: end: 20040204
  4. ISOSORBIDE MONONITRATE [Suspect]
     Dosage: 2 DF/DAY
     Route: 048
     Dates: end: 20040204
  5. LASIX [Suspect]
     Dosage: 80 MG/DAY
     Route: 048
     Dates: end: 20040204
  6. BUFFERIN [Suspect]
     Dosage: 81 MG/DAY
     Route: 048
     Dates: end: 20040204

REACTIONS (8)
  - ANAEMIA [None]
  - CARDIAC FAILURE CONGESTIVE [None]
  - DYSPNOEA [None]
  - FAECES DISCOLOURED [None]
  - HYPERKALAEMIA [None]
  - NASOPHARYNGITIS [None]
  - PLEURAL EFFUSION [None]
  - WEIGHT INCREASED [None]
